FAERS Safety Report 6401369-9 (Version None)
Quarter: 2009Q4

REPORT INFORMATION
  Report Type: 
  Country: None (occurrence: None)
  Receive Date: 20091015
  Receipt Date: 20091001
  Transmission Date: 20100525
  Serious: No
  Sender: FDA-Public Use
  Company Number: US-BAYER-200935080NA

PATIENT
  Sex: Female

DRUGS (2)
  1. MIRENA [Suspect]
     Indication: DRUG USE FOR UNKNOWN INDICATION
     Route: 015
     Dates: start: 20090730
  2. TRIPAHASIL [Concomitant]
     Indication: CONTRACEPTION
     Dates: end: 20090730

REACTIONS (8)
  - ANTEPARTUM HAEMORRHAGE [None]
  - BACK PAIN [None]
  - DYSPEPSIA [None]
  - INSOMNIA [None]
  - MEDICAL DEVICE COMPLICATION [None]
  - MEDICATION ERROR [None]
  - VOMITING IN PREGNANCY [None]
  - WEIGHT INCREASED [None]
